FAERS Safety Report 4565006-0 (Version None)
Quarter: 2005Q1

REPORT INFORMATION
  Report Type: 
  Country: None (occurrence: None)
  Receive Date: 20050126
  Receipt Date: 20050106
  Transmission Date: 20050727
  Serious: Yes (Death, Life-Threatening)
  Sender: FDA-Public Use
  Company Number: EWC050142155

PATIENT
  Age: 35 Year
  Sex: Female
  Weight: 110 kg

DRUGS (3)
  1. OLANZAPINE [Suspect]
     Indication: AGITATION
     Dosage: 10 MG
     Route: 030
     Dates: start: 20041225, end: 20041225
  2. OLANZAPINE [Suspect]
     Indication: BIPOLAR DISORDER
     Dosage: 10 MG
     Route: 030
     Dates: start: 20041225, end: 20041225
  3. VALIUM [Concomitant]

REACTIONS (3)
  - APNOEA [None]
  - CARDIAC ARREST [None]
  - SUDDEN DEATH [None]
